FAERS Safety Report 18049698 (Version 6)
Quarter: 2020Q3

REPORT INFORMATION
  Report Type: Spontaneous
  Country: LT (occurrence: LT)
  Receive Date: 20200721
  Receipt Date: 20200812
  Transmission Date: 20201103
  Serious: Yes (Life-Threatening, Hospitalization, Disabling, Other)
  Sender: FDA-Public Use
  Company Number: LT-PFIZER INC-2020276335

PATIENT
  Age: 41 Year
  Sex: Female
  Weight: 80 kg

DRUGS (9)
  1. ZESSLY [Suspect]
     Active Substance: INFLIXIMAB
     Indication: RHEUMATOID ARTHRITIS
     Dosage: 200 MG, DAILY
     Route: 042
     Dates: start: 20190719, end: 20200615
  2. VITAMIN D3 [Concomitant]
     Active Substance: CHOLECALCIFEROL
     Route: 065
  3. METHOTREXATE SODIUM. [Suspect]
     Active Substance: METHOTREXATE SODIUM
     Indication: RHEUMATOID ARTHRITIS
     Dosage: 15 MG, WEEKLY
     Route: 065
     Dates: start: 2019
  4. VITAMIN D3 [Concomitant]
     Active Substance: CHOLECALCIFEROL
     Dosage: UNK
     Route: 065
  5. POTASSIUM [Concomitant]
     Active Substance: POTASSIUM
     Dosage: UNK
  6. VITAMIN D3 [Concomitant]
     Active Substance: CHOLECALCIFEROL
     Route: 065
  7. CALCIUM [Concomitant]
     Active Substance: CALCIUM
     Dosage: UNK
     Route: 065
  8. DICLOFENAC [Concomitant]
     Active Substance: DICLOFENAC
     Dosage: 50MG 2XD
     Route: 065
  9. FOLIC ACID. [Concomitant]
     Active Substance: FOLIC ACID
     Dosage: 10 MG, WEEKLY
     Route: 065

REACTIONS (13)
  - Loss of consciousness [Not Recovered/Not Resolved]
  - Electrocardiogram abnormal [Unknown]
  - Troponin I increased [Unknown]
  - Respiratory failure [Recovered/Resolved]
  - Myocardial infarction [Not Recovered/Not Resolved]
  - Chest pain [Not Recovered/Not Resolved]
  - Embolism [Not Recovered/Not Resolved]
  - Tonic convulsion [Not Recovered/Not Resolved]
  - Brain injury [Not Recovered/Not Resolved]
  - Cardiac ventricular thrombosis [Not Recovered/Not Resolved]
  - Clinical death [Recovered/Resolved with Sequelae]
  - Pneumonia [Not Recovered/Not Resolved]
  - Asthenia [Recovered/Resolved]

NARRATIVE: CASE EVENT DATE: 202006
